FAERS Safety Report 5744867-3 (Version None)
Quarter: 2008Q2

REPORT INFORMATION
  Report Type: 
  Country: None (occurrence: None)
  Receive Date: 20080516
  Receipt Date: 20080222
  Transmission Date: 20081010
  Serious: Yes (Hospitalization)
  Sender: FDA-Public Use
  Company Number: 2008MB000056

PATIENT
  Age: 67 Year
  Sex: Female

DRUGS (12)
  1. CEPHALEXIN [Suspect]
     Indication: URINARY TRACT INFECTION
     Dosage: 500 MG; TID; PO
     Route: 048
     Dates: start: 20080108, end: 20080112
  2. IKOREL [Concomitant]
  3. ARTHROTEC /00372302/ [Concomitant]
  4. ASPIRIN [Concomitant]
  5. DESLORATADINE [Concomitant]
  6. DIORALYTE /00386201/ [Concomitant]
  7. DOMPERIDONE [Concomitant]
  8. FERROUS SULFATE TAB [Concomitant]
  9. GLYCERYL TRINITRATE [Concomitant]
  10. LOPERAMIDE HCL [Concomitant]
  11. SIMVASTATIN [Concomitant]
  12. TRAMADOL HCL [Concomitant]

REACTIONS (4)
  - GASTRITIS [None]
  - OESOPHAGEAL ULCER [None]
  - PHARYNGOLARYNGEAL PAIN [None]
  - TONGUE ULCERATION [None]
